FAERS Safety Report 9937209 (Version 1)
Quarter: 2014Q1

REPORT INFORMATION
  Report Type: Spontaneous
  Country: US (occurrence: US)
  Receive Date: 20140301
  Receipt Date: 20140301
  Transmission Date: 20141002
  Serious: Yes (Hospitalization)
  Sender: FDA-Public Use
  Company Number: PHEH2014US003555

PATIENT
  Age: 80 Year
  Sex: Male

DRUGS (6)
  1. EXELON PATCH [Suspect]
     Indication: DEMENTIA ALZHEIMER^S TYPE
     Dosage: 4.6 MG, QD (EVERY 24 HOURS)
     Route: 062
  2. EXELON PATCH [Suspect]
     Indication: DEMENTIA
  3. DONEPEZIL [Suspect]
     Indication: DEMENTIA ALZHEIMER^S TYPE
     Dosage: 5 MG, QD
  4. DONEPEZIL [Suspect]
     Indication: DEMENTIA
  5. NAMENDA [Suspect]
     Indication: DEMENTIA ALZHEIMER^S TYPE
     Dosage: 5 MG, UNK
  6. NAMENDA [Suspect]
     Indication: DEMENTIA

REACTIONS (2)
  - Fall [Recovered/Resolved]
  - Bradycardia [Recovered/Resolved]
